FAERS Safety Report 4928396-2 (Version None)
Quarter: 2006Q1

REPORT INFORMATION
  Report Type: 
  Country: None (occurrence: None)
  Receive Date: 20060223
  Receipt Date: 20060213
  Transmission Date: 20060701
  Serious: Yes (Other)
  Sender: FDA-Public Use
  Company Number: 2006016304

PATIENT
  Age: 33 Year
  Sex: Female
  Weight: 53.978 kg

DRUGS (5)
  1. BENADRYL [Suspect]
     Indication: URTICARIA
     Dosage: TWO BEFORE BED, ORAL
     Route: 048
     Dates: start: 20060122, end: 20060127
  2. AMOXICILLIN [Suspect]
     Indication: SINUSITIS
     Dosage: 500 MG 3 TIMES PER DAY
     Dates: start: 20060117, end: 20060126
  3. LORATADINE [Suspect]
     Indication: URTICARIA
     Dates: start: 20060122, end: 20060126
  4. ETHINYLESTRADIOL/NORELGESTROMIN [Concomitant]
  5. B-KOMPLEX ^LECIVA^ (CALCIUM PANTOTHENATE, NICOTINAMIDE, PYRIDOXINE HYD [Concomitant]

REACTIONS (4)
  - FALL [None]
  - INCORRECT DOSE ADMINISTERED [None]
  - LOSS OF CONSCIOUSNESS [None]
  - SOMNOLENCE [None]
